FAERS Safety Report 6344604-8 (Version None)
Quarter: 2009Q3

REPORT INFORMATION
  Report Type: 
  Country: None (occurrence: None)
  Receive Date: 20090903
  Receipt Date: 20090819
  Transmission Date: 20100115
  Serious: Yes (Hospitalization)
  Sender: FDA-Public Use
  Company Number: 2009SP001214

PATIENT
  Age: 1 Year
  Sex: Male
  Weight: 11.5 kg

DRUGS (6)
  1. XOPENEX [Suspect]
     Indication: ASTHMA
     Dosage: 0.31 MG/3ML; INHALATION; 0.63 MG/3ML; INHALATION; 0.63 MG/3ML; INHALATION
     Route: 055
     Dates: start: 20050101
  2. XOPENEX [Suspect]
     Indication: ASTHMA
     Dosage: 0.31 MG/3ML; INHALATION; 0.63 MG/3ML; INHALATION; 0.63 MG/3ML; INHALATION
     Route: 055
     Dates: start: 20060101
  3. CON MEDS [Concomitant]
  4. CLONIDINE [Concomitant]
  5. AUGMENTIN '125' [Concomitant]
  6. VANTIN /01043502/ [Concomitant]

REACTIONS (19)
  - ADENOIDAL DISORDER [None]
  - ARRHYTHMIA [None]
  - ASTHMA [None]
  - CHRONIC TONSILLITIS [None]
  - COUGH [None]
  - CYANOSIS [None]
  - DROOLING [None]
  - ELECTROCARDIOGRAM ABNORMAL [None]
  - LEFT VENTRICULAR HYPERTROPHY [None]
  - MENTAL STATUS CHANGES [None]
  - NASAL CONGESTION [None]
  - PALLOR [None]
  - PSYCHOMOTOR HYPERACTIVITY [None]
  - RESPIRATORY DISORDER [None]
  - RHINORRHOEA [None]
  - UNDERDOSE [None]
  - UPPER RESPIRATORY TRACT INFECTION [None]
  - VOMITING [None]
  - WHEEZING [None]
